FAERS Safety Report 23979380 (Version 1)
Quarter: 2024Q2

REPORT INFORMATION
  Report Type: Spontaneous
  Country: SG (occurrence: SG)
  Receive Date: 20240615
  Receipt Date: 20240615
  Transmission Date: 20240716
  Serious: Yes (Other)
  Sender: FDA-Public Use
  Company Number: SG-SA-SAC20240611000052

PATIENT
  Age: 70 Year
  Sex: Female

DRUGS (1)
  1. CLOPIDOGREL BISULFATE [Suspect]
     Active Substance: CLOPIDOGREL BISULFATE
     Dosage: UNK
     Route: 065
     Dates: start: 20240201

REACTIONS (1)
  - Dermatitis exfoliative generalised [Unknown]

NARRATIVE: CASE EVENT DATE: 20240201
